FAERS Safety Report 8351215-1 (Version None)
Quarter: 2012Q2

REPORT INFORMATION
  Report Type: 
  Country: None (occurrence: None)
  Receive Date: 20120510
  Receipt Date: 20120427
  Transmission Date: 20120825
  Serious: Yes (Other)
  Sender: FDA-Public Use
  Company Number: US-ENDO PHARMACEUTICALS INC.-OPCR20120527

PATIENT
  Sex: Female
  Weight: 69.916 kg

DRUGS (2)
  1. OPANA ER [Concomitant]
     Dosage: UNKNOWN
     Route: 048
     Dates: end: 20120101
  2. OPANA ER [Suspect]
     Indication: GENERAL PHYSICAL CONDITION ABNORMAL
     Route: 048
     Dates: start: 20120101, end: 20120101

REACTIONS (3)
  - MEDICATION RESIDUE [None]
  - DRUG ABUSE [None]
  - DRUG SCREEN NEGATIVE [None]
